FAERS Safety Report 24639512 (Version 3)
Quarter: 2024Q4

REPORT INFORMATION
  Report Type: Report from Study
  Country: FR (occurrence: FR)
  Receive Date: 20241119
  Receipt Date: 20241128
  Transmission Date: 20250115
  Serious: Yes (Other)
  Sender: ABBVIE
  Company Number: FR-ABBVIE-6004742

PATIENT
  Age: 45 Year
  Sex: Male
  Weight: 37 kg

DRUGS (4)
  1. UPADACITINIB [Suspect]
     Active Substance: UPADACITINIB
     Indication: Dermatitis atopic
     Dosage: 30 MILLIGRAM
     Route: 048
     Dates: start: 20240701, end: 20240926
  2. UPADACITINIB [Suspect]
     Active Substance: UPADACITINIB
     Indication: Dermatitis atopic
     Dosage: 15 MILLIGRAM
     Route: 048
     Dates: start: 20231229, end: 20240103
  3. UPADACITINIB [Suspect]
     Active Substance: UPADACITINIB
     Indication: Dermatitis atopic
     Route: 048
     Dates: start: 20241008
  4. UPADACITINIB [Suspect]
     Active Substance: UPADACITINIB
     Indication: Dermatitis atopic
     Dosage: 15 MILLIGRAM
     Route: 048
     Dates: start: 20240119, end: 20240630

REACTIONS (4)
  - Scar [Recovered/Resolved]
  - Drug ineffective [Recovering/Resolving]
  - Superinfection [Recovered/Resolved]
  - Osteonecrosis of external auditory canal [Recovered/Resolved]

NARRATIVE: CASE EVENT DATE: 20240701
